FAERS Safety Report 14270521 (Version 2)
Quarter: 2018Q1

REPORT INFORMATION
  Report Type: Spontaneous
  Country: AT (occurrence: AT)
  Receive Date: 20171211
  Receipt Date: 20180111
  Transmission Date: 20180508
  Serious: Yes (Other)
  Sender: FDA-Public Use
  Company Number: AT-OTSUKA-2016_012929

PATIENT
  Age: 23 Year
  Sex: Male
  Weight: 68.1 kg

DRUGS (10)
  1. ABILIFY [Suspect]
     Active Substance: ARIPIPRAZOLE
     Dosage: 10 MG, QD
     Route: 048
     Dates: start: 20150530, end: 20150531
  2. LEPONEX [Concomitant]
     Active Substance: CLOZAPINE
     Dosage: 425 MG, TOTAL
     Route: 048
     Dates: start: 20150708, end: 20150708
  3. ABILIFY [Suspect]
     Active Substance: ARIPIPRAZOLE
     Indication: PRODUCT USED FOR UNKNOWN INDICATION
     Dosage: 15 MG, QD
     Route: 048
     Dates: start: 20150109, end: 20150529
  4. CITALOPRAM [Concomitant]
     Active Substance: CITALOPRAM HYDROBROMIDE
     Indication: PRODUCT USED FOR UNKNOWN INDICATION
     Dosage: 20 MG, TID
     Route: 048
     Dates: start: 20150109, end: 20150430
  5. INDERAL [Concomitant]
     Active Substance: PROPRANOLOL HYDROCHLORIDE
     Indication: SINUS TACHYCARDIA
     Dosage: 20 MG, TOTAL
     Route: 065
     Dates: start: 20150615, end: 20150617
  6. INDERAL [Concomitant]
     Active Substance: PROPRANOLOL HYDROCHLORIDE
     Indication: PRODUCT USED FOR UNKNOWN INDICATION
     Dosage: 30 MG, TOTAL
     Route: 065
     Dates: start: 20150618
  7. LEPONEX [Concomitant]
     Active Substance: CLOZAPINE
     Indication: PRODUCT USED FOR UNKNOWN INDICATION
     Dosage: 75 MG, TID
     Route: 065
     Dates: start: 201503, end: 20150529
  8. LEPONEX [Concomitant]
     Active Substance: CLOZAPINE
     Dosage: 100 MG, TOTAL
     Route: 048
     Dates: start: 20150530, end: 20150624
  9. LEPONEX [Concomitant]
     Active Substance: CLOZAPINE
     Dosage: 400 MG, TOTAL
     Route: 048
     Dates: start: 20150625, end: 20150707
  10. LEPONEX [Concomitant]
     Active Substance: CLOZAPINE
     Dosage: 450 MG, TOTAL
     Route: 048
     Dates: start: 20150709

REACTIONS (1)
  - Tardive dyskinesia [Recovered/Resolved]

NARRATIVE: CASE EVENT DATE: 20150430
